FAERS Safety Report 23950360 (Version 1)
Quarter: 2024Q2

REPORT INFORMATION
  Report Type: Spontaneous
  Country: CH (occurrence: CH)
  Receive Date: 20240607
  Receipt Date: 20240607
  Transmission Date: 20240715
  Serious: Yes (Other)
  Sender: FDA-Public Use
  Company Number: CH-GILEAD-2024-0674205

PATIENT

DRUGS (1)
  1. TRODELVY [Suspect]
     Active Substance: SACITUZUMAB GOVITECAN-HZIY
     Indication: Transitional cell carcinoma urethra
     Dosage: INCREASED FROM 1 TO 3 VIALS /TRODELVY POWDER 180 MG VIAL
     Route: 065
     Dates: start: 20230829

REACTIONS (2)
  - Disease progression [Unknown]
  - Off label use [Unknown]
